FAERS Safety Report 13044133 (Version 1)
Quarter: 2016Q4

REPORT INFORMATION
  Report Type: Spontaneous
  Country: US (occurrence: US)
  Receive Date: 20161220
  Receipt Date: 20161220
  Transmission Date: 20170207
  Serious: No
  Sender: FDA-Public Use
  Company Number: US-ROCHE-1015538

PATIENT
  Sex: Male

DRUGS (1)
  1. ZELBORAF [Suspect]
     Active Substance: VEMURAFENIB
     Indication: PRODUCT USED FOR UNKNOWN INDICATION
     Route: 065

REACTIONS (10)
  - Joint stiffness [Unknown]
  - Vision blurred [Unknown]
  - Mass [Unknown]
  - Myalgia [Unknown]
  - Skin discolouration [Unknown]
  - Limb mass [Unknown]
  - Acne [Unknown]
  - Blister [Unknown]
  - Blood pressure increased [Unknown]
  - Arthralgia [Unknown]
